FAERS Safety Report 15724622 (Version 1)
Quarter: 2018Q4

REPORT INFORMATION
  Report Type: Report from Study
  Country: US (occurrence: US)
  Receive Date: 20181214
  Receipt Date: 20181214
  Transmission Date: 20190205
  Serious: Yes (Other)
  Sender: FDA-Public Use
  Company Number: US-BAUSCH-BL-2018-028909

PATIENT
  Age: 52 Year
  Sex: Female

DRUGS (1)
  1. SILIQ [Suspect]
     Active Substance: BRODALUMAB
     Indication: PRODUCT USED FOR UNKNOWN INDICATION
     Dosage: AT WEEK 0,1,2 AS DIRECTED
     Route: 058

REACTIONS (2)
  - Tooth extraction [Unknown]
  - Extra dose administered [Unknown]

NARRATIVE: CASE EVENT DATE: 2018
